FAERS Safety Report 6485107-X (Version None)
Quarter: 2009Q4

REPORT INFORMATION
  Report Type: 
  Country: None (occurrence: None)
  Receive Date: 20091203
  Receipt Date: 20091123
  Transmission Date: 20100525
  Serious: Yes (Other)
  Sender: FDA-Public Use
  Company Number: CERZ-1000952

PATIENT
  Age: 30 Year
  Sex: Female
  Weight: 68 kg

DRUGS (13)
  1. CEREZYME [Suspect]
     Indication: GAUCHER'S DISEASE
     Dosage: SEE IMAGE, INTRAVENOUS
     Route: 042
     Dates: start: 20090202, end: 20090202
  2. CEREZYME [Suspect]
     Indication: GAUCHER'S DISEASE
     Dosage: SEE IMAGE, INTRAVENOUS
     Route: 042
     Dates: start: 20090219, end: 20090219
  3. CEREZYME [Suspect]
     Indication: GAUCHER'S DISEASE
     Dosage: SEE IMAGE, INTRAVENOUS
     Route: 042
     Dates: start: 20090304, end: 20090304
  4. CEREZYME [Suspect]
     Indication: GAUCHER'S DISEASE
     Dosage: SEE IMAGE, INTRAVENOUS
     Route: 042
     Dates: start: 20090320, end: 20090320
  5. CEREZYME [Suspect]
     Indication: GAUCHER'S DISEASE
     Dosage: SEE IMAGE, INTRAVENOUS
     Route: 042
     Dates: start: 20090626, end: 20090626
  6. CEREZYME [Suspect]
     Indication: GAUCHER'S DISEASE
     Dosage: SEE IMAGE, INTRAVENOUS
     Route: 042
     Dates: start: 20090717, end: 20090717
  7. CEREZYME [Suspect]
     Indication: GAUCHER'S DISEASE
     Dosage: SEE IMAGE, INTRAVENOUS
     Route: 042
     Dates: start: 20090731, end: 20090731
  8. CEREZYME [Suspect]
     Indication: GAUCHER'S DISEASE
     Dosage: SEE IMAGE, INTRAVENOUS
     Route: 042
     Dates: start: 20090815, end: 20090815
  9. CEREZYME [Suspect]
     Indication: GAUCHER'S DISEASE
     Dosage: SEE IMAGE, INTRAVENOUS
     Route: 042
     Dates: start: 20090828, end: 20090828
  10. CEREZYME [Suspect]
     Indication: GAUCHER'S DISEASE
     Dosage: SEE IMAGE, INTRAVENOUS
     Route: 042
     Dates: start: 20090914, end: 20090914
  11. CEREZYME [Suspect]
     Indication: GAUCHER'S DISEASE
     Dosage: SEE IMAGE, INTRAVENOUS
     Route: 042
     Dates: start: 20090929, end: 20090929
  12. CEREZYME [Suspect]
     Indication: GAUCHER'S DISEASE
     Dosage: SEE IMAGE, INTRAVENOUS
     Route: 042
     Dates: start: 20050301
  13. CEREZYME [Suspect]
     Indication: GAUCHER'S DISEASE

REACTIONS (4)
  - ABORTION THREATENED [None]
  - DRUG EXPOSURE DURING PREGNANCY [None]
  - PREGNANCY [None]
  - THROMBOCYTOPENIA [None]
